FAERS Safety Report 25415979 (Version 1)
Quarter: 2025Q2

REPORT INFORMATION
  Report Type: Report from Study
  Country: IT (occurrence: IT)
  Receive Date: 20250610
  Receipt Date: 20250610
  Transmission Date: 20250717
  Serious: Yes (Hospitalization, Other)
  Sender: BRISTOL-MYERS SQUIBB COMPANY
  Company Number: None

PATIENT
  Age: 86 Year
  Sex: Female

DRUGS (7)
  1. AZACITIDINE [Suspect]
     Active Substance: AZACITIDINE
     Indication: Acute myeloid leukaemia
     Dosage: 75 MG/SQM/DAY FOR 7 DAYS Q4W
     Route: 058
     Dates: start: 20250130, end: 20250205
  2. VENETOCLAX [Suspect]
     Active Substance: VENETOCLAX
     Indication: Acute myeloid leukaemia
     Dosage: 100 MG/DAY FOR 14 DAYS Q4W
     Route: 048
     Dates: start: 20250130, end: 20250212
  3. BISOPROLOL FUMARATE [Concomitant]
     Active Substance: BISOPROLOL FUMARATE
     Indication: Product used for unknown indication
  4. SITAGLIPTIN/METFORMIN HYDROCHLORIDE [METFORMIN HYDROCHLORIDE;SITAGLIPT [Concomitant]
     Indication: Product used for unknown indication
  5. ATORVASTATIN [Concomitant]
     Active Substance: ATORVASTATIN
     Indication: Product used for unknown indication
  6. FUROSEMIDE [Concomitant]
     Active Substance: FUROSEMIDE
     Indication: Product used for unknown indication
  7. FILGRASTIM [Concomitant]
     Active Substance: FILGRASTIM
     Indication: Neutropenia

REACTIONS (7)
  - Febrile neutropenia [Recovered/Resolved]
  - Sepsis [Recovered/Resolved]
  - Eye infection [Recovered/Resolved]
  - Neutropenia [Recovered/Resolved]
  - Thrombocytopenia [Recovering/Resolving]
  - Anaemia [Recovered/Resolved]
  - Pseudomonas infection [Recovered/Resolved]

NARRATIVE: CASE EVENT DATE: 20250218
